FAERS Safety Report 6487115-1 (Version None)
Quarter: 2009Q4

REPORT INFORMATION
  Report Type: 
  Country: None (occurrence: None)
  Receive Date: 20091210
  Receipt Date: 20091208
  Transmission Date: 20100525
  Serious: Yes (Life-Threatening, Hospitalization)
  Sender: FDA-Public Use
  Company Number: FR-WYE-G04439809

PATIENT
  Sex: Male

DRUGS (10)
  1. TORISEL [Suspect]
     Indication: RENAL CANCER METASTATIC
     Route: 042
     Dates: start: 20090410, end: 20090424
  2. MEDIATENSYL [Concomitant]
     Dosage: UNKNOWN
  3. KARDEGIC [Concomitant]
     Dosage: UNKNOWN
  4. PARACETAMOL [Concomitant]
     Dosage: UNKNOWN
  5. IMOVANE [Concomitant]
     Dosage: UNKNOWN
  6. LASILIX [Concomitant]
     Dosage: UNKNOWN
  7. SOLUPRED [Concomitant]
     Dosage: UNKNOWN
  8. ATARAX [Concomitant]
     Dosage: UNKNOWN
  9. AVASTIN [Suspect]
     Indication: RENAL CANCER METASTATIC
     Route: 042
     Dates: start: 20090410, end: 20090424
  10. XYZAL [Concomitant]
     Dosage: UNKNOWN

REACTIONS (2)
  - CEREBROVASCULAR ACCIDENT [None]
  - HEMIPLEGIA [None]
